FAERS Safety Report 11159367 (Version 1)
Quarter: 2015Q2

REPORT INFORMATION
  Report Type: Spontaneous
  Country: US (occurrence: US)
  Receive Date: 20150603
  Receipt Date: 20150603
  Transmission Date: 20150821
  Serious: No
  Sender: FDA-Public Use
  Company Number: US-BAYER-2015-294259

PATIENT
  Age: 55 Year
  Sex: Male
  Weight: 78.46 kg

DRUGS (2)
  1. PSYLLIUM HUSK [Concomitant]
     Active Substance: PSYLLIUM HUSK
  2. MIRALAX [Suspect]
     Active Substance: POLYETHYLENE GLYCOL 3350
     Indication: CONSTIPATION
     Dosage: UNK, PRN
     Route: 048
     Dates: start: 20150514, end: 201505

REACTIONS (1)
  - Drug ineffective [Unknown]

NARRATIVE: CASE EVENT DATE: 20150514
